FAERS Safety Report 20837764 (Version 1)
Quarter: 2022Q2

REPORT INFORMATION
  Report Type: Spontaneous
  Country: US (occurrence: US)
  Receive Date: 20220517
  Receipt Date: 20220517
  Transmission Date: 20220720
  Serious: Yes (Other)
  Sender: FDA-Public Use
  Company Number: US-ADVANZ PHARMA-202205002762

PATIENT

DRUGS (5)
  1. HYDROXYCHLOROQUINE [Suspect]
     Active Substance: HYDROXYCHLOROQUINE
     Indication: Product used for unknown indication
     Dosage: UNK, PLAQUENIL
     Route: 065
  2. RINVOQ [Suspect]
     Active Substance: UPADACITINIB
     Indication: Rheumatoid arthritis
     Dosage: UNK
     Route: 048
     Dates: start: 20210330
  3. PFIZER BIONTECH COVID-19 VACCINE (TOZINAMERAN) [Concomitant]
     Indication: COVID-19 immunisation
     Dosage: 1 IN 1 ONCE
     Route: 030
     Dates: start: 202102
  4. PFIZER BIONTECH COVID-19 VACCINE (TOZINAMERAN) [Concomitant]
     Dosage: 1 IN 1 ONCE
     Route: 030
     Dates: start: 202102
  5. PFIZER BIONTECH COVID-19 VACCINE (TOZINAMERAN) [Concomitant]
     Dosage: 1 IN 1 ONCE
     Route: 030
     Dates: start: 202108

REACTIONS (6)
  - Blindness unilateral [Unknown]
  - Retinal injury [Not Recovered/Not Resolved]
  - Toxicity to various agents [Unknown]
  - Neck pain [Unknown]
  - Back pain [Unknown]
  - COVID-19 [Recovered/Resolved]

NARRATIVE: CASE EVENT DATE: 20211001
